FAERS Safety Report 8759808 (Version 1)
Quarter: 2012Q4

REPORT INFORMATION
  Report Type: 
  Country: CN (occurrence: CN)
  Receive Date: 20120904
  Receipt Date: 20120904
  Transmission Date: 20130627
  Serious: Yes (Hospitalization)
  Sender: FDA-Public Use
  Company Number: CN-ASTRAZENECA-2012SE64730

PATIENT
  Sex: Female
  Weight: 70 kg

DRUGS (1)
  1. FELODIPINE [Suspect]
     Indication: SECONDARY HYPERTENSION
     Route: 048
     Dates: start: 20110419, end: 20110620

REACTIONS (3)
  - Face oedema [Recovered/Resolved]
  - Oedema peripheral [Recovered/Resolved]
  - Malaise [Recovered/Resolved]
